FAERS Safety Report 8624145-5 (Version None)
Quarter: 2012Q3

REPORT INFORMATION
  Report Type: 
  Country: None (occurrence: None)
  Receive Date: 20120827
  Receipt Date: 20120815
  Transmission Date: 20120928
  Serious: Yes (Other)
  Sender: FDA-Public Use
  Company Number: DE-JNJFOC-20120812703

PATIENT
  Sex: Female
  Weight: 75 kg

DRUGS (10)
  1. XARELTO [Suspect]
     Route: 048
     Dates: start: 20120515, end: 20120619
  2. MOXONIDIN [Concomitant]
  3. LISINOPRIL [Concomitant]
     Dosage: 20/12.5 MG DOSE
  4. XARELTO [Suspect]
     Route: 048
     Dates: start: 20120515, end: 20120619
  5. ALLOPURINOL [Concomitant]
     Dosage: 2/3 IN THE EVENING
  6. XARELTO [Suspect]
     Indication: CEREBROVASCULAR ACCIDENT PROPHYLAXIS
     Route: 048
     Dates: start: 20120620, end: 20120718
  7. XARELTO [Suspect]
     Indication: ATRIAL FIBRILLATION
     Route: 048
     Dates: start: 20120620, end: 20120718
  8. SIMVASTATIN [Concomitant]
  9. LEVOTHYROXINE SODIUM [Concomitant]
     Dosage: DOSE: 75
  10. BISOPROLOL FUMARATE [Concomitant]

REACTIONS (2)
  - RENAL FAILURE [None]
  - HEPATIC ENZYME INCREASED [None]
